APPROVED DRUG PRODUCT: NOREPINEPHRINE BITARTRATE IN 0.9% SODIUM CHLORIDE
Active Ingredient: NOREPINEPHRINE BITARTRATE
Strength: EQ 4MG BASE/250 ML (EQ 16MCG BASE/ML)
Dosage Form/Route: SOLUTION;INTRAVENOUS
Application: N214628 | Product #001
Applicant: LONG GROVE PHARMACEUTICALS LLC
Approved: Oct 6, 2022 | RLD: Yes | RS: Yes | Type: RX

PATENTS:
Patent 11413259 | Expires: Jan 30, 2038
Patent 10420735 | Expires: Jan 30, 2038
Patent 10226436 | Expires: Jan 30, 2038
Patent 12245996 | Expires: Jan 30, 2038
Patent 10568850 | Expires: Jan 30, 2038
Patent 10159657 | Expires: Jan 30, 2038
Patent 11602508 | Expires: Jan 30, 2038